FAERS Safety Report 4819806-X (Version None)
Quarter: 2005Q4

REPORT INFORMATION
  Report Type: 
  Country: None (occurrence: None)
  Receive Date: 20051102
  Receipt Date: 20051017
  Transmission Date: 20060501
  Serious: Yes (Life-Threatening)
  Sender: FDA-Public Use
  Company Number: 218872

PATIENT
  Age: 44 Year
  Sex: Female
  Weight: 67 kg

DRUGS (5)
  1. AVASTIN [Suspect]
     Indication: COLON CANCER
     Dosage: 5 MG/KG, INTRAVENOUS
     Route: 042
     Dates: start: 20050907, end: 20050907
  2. ZOPHREN (DANSETRON HYDROCHLORIDE) [Suspect]
     Indication: COLON CANCER
     Dosage: 8 MG, INTRVENOUS
     Route: 042
     Dates: start: 20050907, end: 20050907
  3. FLUOROURACIL [Suspect]
     Indication: COLON CANCER
     Dosage: 40 MG/M2, INTRAVNEOUS
     Route: 042
     Dates: start: 20050907, end: 20050907
  4. OXALIPLATIN (OXALIPLATIN) [Suspect]
     Indication: COLON CANCER
     Dosage: 85 MG/M2, INTRAVENOUS
     Route: 042
     Dates: start: 20050907, end: 20050907
  5. LEUCOVORIN CALCIUM [Suspect]
     Indication: COLON CANCER
     Dosage: 400 MG/M2, INTRAVENOUS
     Route: 042
     Dates: start: 20050907, end: 20050907

REACTIONS (2)
  - CARDIAC ARREST [None]
  - SEPTIC SHOCK [None]
